FAERS Safety Report 19832185 (Version 1)
Quarter: 2021Q3

REPORT INFORMATION
  Report Type: Spontaneous
  Country: DE (occurrence: DE)
  Receive Date: 20210915
  Receipt Date: 20210915
  Transmission Date: 20211014
  Serious: Yes (Hospitalization)
  Sender: FDA-Public Use
  Company Number: DE-ACCORD-238599

PATIENT
  Age: 80 Year
  Sex: Female
  Weight: 60 kg

DRUGS (6)
  1. METOPROLOL. [Concomitant]
     Active Substance: METOPROLOL
     Dosage: 47.5 MG, 1?0?1?0, PROLONGED?RELEASE TABLETS
     Route: 048
  2. TORASEMIDE [Suspect]
     Active Substance: TORSEMIDE
     Indication: PRODUCT USED FOR UNKNOWN INDICATION
     Dosage: 10 MG, 1?0?0?0, TABLETS
     Route: 048
  3. DOXAZOSIN/DOXAZOSIN MESILATE [Concomitant]
     Dosage: 4 MG, 1?0?0?0, PROLONGED?RELEASE TABLETS
     Route: 048
  4. OPIPRAMOL/OPIPRAMOL HYDROCHLORIDE [Concomitant]
     Active Substance: OPIPRAMOL\OPIPRAMOL HYDROCHLORIDE
     Dosage: 50 MG, 1?0?0?0, TABLETS
     Route: 048
  5. SPIRONOLACTONE. [Suspect]
     Active Substance: SPIRONOLACTONE
     Indication: PRODUCT USED FOR UNKNOWN INDICATION
     Dosage: 50 MG, 0.5?0?0?0, TABLETS
     Route: 048
  6. HYDROCHLOROTHIAZIDE/RAMIPRIL [Suspect]
     Active Substance: HYDROCHLOROTHIAZIDE\RAMIPRIL
     Indication: PRODUCT USED FOR UNKNOWN INDICATION
     Dosage: 12.5 / 5 MG, 1?0?0?0, TABLETS
     Route: 048

REACTIONS (3)
  - Dyspnoea [Recovering/Resolving]
  - Dizziness [Recovering/Resolving]
  - Fatigue [Recovering/Resolving]
